FAERS Safety Report 5716502-1 (Version None)
Quarter: 2008Q2

REPORT INFORMATION
  Report Type: 
  Country: None (occurrence: None)
  Receive Date: 20080424
  Receipt Date: 20080410
  Transmission Date: 20081010
  Serious: Yes (Life-Threatening, Hospitalization, Other)
  Sender: FDA-Public Use
  Company Number: US-BAUSCH-2008BL001623

PATIENT
  Age: 22 Year
  Sex: Male

DRUGS (3)
  1. CIPROFLOXACIN [Suspect]
     Indication: PNEUMONIA
     Route: 042
  2. DOXYCYCLINE [Concomitant]
     Indication: PNEUMONIA
     Route: 042
  3. PIPERACILLIN W/TAZOBACTAM [Concomitant]
     Indication: PNEUMONIA
     Route: 042

REACTIONS (3)
  - TORSADE DE POINTES [None]
  - VENTRICULAR EXTRASYSTOLES [None]
  - VENTRICULAR FIBRILLATION [None]
